FAERS Safety Report 14238220 (Version 1)
Quarter: 2017Q4

REPORT INFORMATION
  Report Type: Spontaneous
  Country: FI (occurrence: FI)
  Receive Date: 20171130
  Receipt Date: 20171130
  Transmission Date: 20180321
  Serious: Yes (Life-Threatening, Other)
  Sender: FDA-Public Use
  Company Number: FI-UCBSA-2017047858

PATIENT
  Age: 30 Year
  Sex: Male

DRUGS (7)
  1. FYCOMPA [Interacting]
     Active Substance: PERAMPANEL
     Indication: EPILEPSY
     Dosage: 2 MG, UNK
     Route: 048
     Dates: start: 20170529, end: 201706
  2. FYCOMPA [Interacting]
     Active Substance: PERAMPANEL
     Dosage: 6 MG, UNK
     Route: 048
     Dates: start: 20170720, end: 20170720
  3. FYCOMPA [Interacting]
     Active Substance: PERAMPANEL
     Dosage: 4 MG, UNK
     Route: 048
     Dates: start: 20170721
  4. FYCOMPA [Interacting]
     Active Substance: PERAMPANEL
     Dosage: 4 MG, UNK
     Route: 048
     Dates: start: 201706, end: 20170719
  5. VIMPAT [Suspect]
     Active Substance: LACOSAMIDE
     Indication: PRODUCT USED FOR UNKNOWN INDICATION
     Dosage: UNK
  6. OXCARBAZEPINE. [Interacting]
     Active Substance: OXCARBAZEPINE
     Indication: EPILEPSY
     Dosage: UNK
  7. VALPROATE SODIUM. [Interacting]
     Active Substance: VALPROATE SODIUM
     Indication: EPILEPSY
     Dosage: UNK

REACTIONS (3)
  - Suicidal ideation [Recovering/Resolving]
  - Homicidal ideation [Recovering/Resolving]
  - Drug interaction [Recovering/Resolving]

NARRATIVE: CASE EVENT DATE: 20170721
